FAERS Safety Report 20485851 (Version 1)
Quarter: 2022Q1

REPORT INFORMATION
  Report Type: Spontaneous
  Country: RO (occurrence: RO)
  Receive Date: 20220217
  Receipt Date: 20220217
  Transmission Date: 20220423
  Serious: Yes (Other)
  Sender: FDA-Public Use
  Company Number: RO-TEVA-2022-RO-2007125

PATIENT

DRUGS (1)
  1. METHOTREXATE [Suspect]
     Active Substance: METHOTREXATE
     Indication: Ankylosing spondylitis
     Route: 065

REACTIONS (3)
  - Hepatic cirrhosis [Not Recovered/Not Resolved]
  - Oropharyngeal squamous cell carcinoma [Unknown]
  - Tuberculosis [Recovering/Resolving]

NARRATIVE: CASE EVENT DATE: 20181101
